FAERS Safety Report 9477154 (Version 2)
Quarter: 2013Q3

REPORT INFORMATION
  Report Type: Spontaneous
  Country: US (occurrence: US)
  Receive Date: 20130826
  Receipt Date: 20130909
  Transmission Date: 20140515
  Serious: No
  Sender: FDA-Public Use
  Company Number: US-009507513-1308USA011002

PATIENT
  Sex: Female

DRUGS (2)
  1. AFRIN [Suspect]
     Indication: RESPIRATORY TRACT CONGESTION
     Dosage: 4 DF, Q6H
     Route: 045
  2. AFRIN [Suspect]
     Dosage: 4 DF, Q6H
     Route: 045

REACTIONS (3)
  - Overdose [Unknown]
  - Drug ineffective [Unknown]
  - Product container issue [Unknown]
